FAERS Safety Report 15644359 (Version 11)
Quarter: 2020Q1

REPORT INFORMATION
  Report Type: Report from Study
  Country: US (occurrence: US)
  Receive Date: 20181121
  Receipt Date: 20200130
  Transmission Date: 20200409
  Serious: Yes (Death, Hospitalization)
  Sender: FDA-Public Use
  Company Number: US-ACTELION-A-US2018-182039

PATIENT
  Age: 61 Year
  Sex: Female
  Weight: 61.22 kg

DRUGS (5)
  1. PREDNISONE. [Concomitant]
     Active Substance: PREDNISONE
  2. ORENITRAM [Concomitant]
     Active Substance: TREPROSTINIL
     Dosage: 0.625 MG, TID
  3. SILDENAFIL CITRATE. [Concomitant]
     Active Substance: SILDENAFIL CITRATE
  4. OPSUMIT [Suspect]
     Active Substance: MACITENTAN
     Indication: PULMONARY ARTERIAL HYPERTENSION
     Dosage: 10 MG, QD
     Route: 048
  5. ORENITRAM [Concomitant]
     Active Substance: TREPROSTINIL
     Dosage: 0.75 MG, TID
     Route: 048

REACTIONS (8)
  - Cough [Not Recovered/Not Resolved]
  - Lung disorder [Unknown]
  - Dyspnoea [Unknown]
  - Hospitalisation [Unknown]
  - Dyspnoea exertional [Not Recovered/Not Resolved]
  - Hospice care [Unknown]
  - Death [Fatal]
  - Emergency care [Unknown]

NARRATIVE: CASE EVENT DATE: 20200106
